FAERS Safety Report 20758043 (Version 1)
Quarter: 2022Q2

REPORT INFORMATION
  Report Type: Spontaneous
  Country: US (occurrence: None)
  Receive Date: 20220427
  Receipt Date: 20220427
  Transmission Date: 20220721
  Serious: Yes (Hospitalization)
  Sender: FDA-Public Use
  Company Number: US-ROCHE-3079425

PATIENT
  Age: 49 Year
  Sex: Female
  Weight: 61.290 kg

DRUGS (2)
  1. OCREVUS [Suspect]
     Active Substance: OCRELIZUMAB
     Indication: Relapsing-remitting multiple sclerosis
     Dosage: YES
     Route: 042
     Dates: start: 202105
  2. LYRICA [Concomitant]
     Active Substance: PREGABALIN

REACTIONS (3)
  - Intervertebral disc protrusion [Not Recovered/Not Resolved]
  - Inflammation [Unknown]
  - Gait disturbance [Not Recovered/Not Resolved]

NARRATIVE: CASE EVENT DATE: 20211001
